FAERS Safety Report 7289001-6 (Version None)
Quarter: 2011Q1

REPORT INFORMATION
  Report Type: 
  Country: None (occurrence: None)
  Receive Date: 20110211
  Receipt Date: 20110202
  Transmission Date: 20110831
  Serious: Yes (Other)
  Sender: FDA-Public Use
  Company Number: PHHY2011GB05893

PATIENT
  Sex: Male
  Weight: 96 kg

DRUGS (4)
  1. CARDICOR [Concomitant]
  2. WARFARIN [Concomitant]
     Indication: INTERNATIONAL NORMALISED RATIO
     Dosage: 1 DF, QD
     Route: 048
     Dates: start: 20090720
  3. WARFARIN [Concomitant]
     Dosage: 2 PUFFS BD
     Dates: start: 20091129
  4. BISOPROLOL FUMARATE [Suspect]
     Indication: HEART RATE
     Dosage: 2.5 MG, UNK
     Route: 048
     Dates: start: 20090522

REACTIONS (3)
  - FEELING ABNORMAL [None]
  - PALPITATIONS [None]
  - TACHYCARDIA [None]
